FAERS Safety Report 4968865-2 (Version None)
Quarter: 2006Q2

REPORT INFORMATION
  Report Type: 
  Country: None (occurrence: None)
  Receive Date: 20060411
  Receipt Date: 20060322
  Transmission Date: 20061013
  Serious: Yes (Hospitalization)
  Sender: FDA-Public Use
  Company Number: PHBS2006JP04353

PATIENT
  Age: 45 Year
  Sex: Female

DRUGS (3)
  1. CYCLOSPORINE [Suspect]
     Indication: RENAL TRANSPLANT
     Dosage: UNK, UNK
     Route: 065
     Dates: start: 19980914
  2. AZATHIOPRINE [Concomitant]
     Indication: RENAL TRANSPLANT
     Dates: start: 19980914
  3. STEROIDS NOS [Concomitant]
     Indication: RENAL TRANSPLANT
     Dates: start: 19980914

REACTIONS (4)
  - CRANIOTOMY [None]
  - HEADACHE [None]
  - MALIGNANT TUMOUR EXCISION [None]
  - MENINGIOMA [None]
